FAERS Safety Report 15505699 (Version 2)
Quarter: 2019Q4

REPORT INFORMATION
  Report Type: Spontaneous
  Country: PL (occurrence: PL)
  Receive Date: 20181016
  Receipt Date: 20191023
  Transmission Date: 20200122
  Serious: Yes (Other)
  Sender: FDA-Public Use
  Company Number: PL-LUPIN PHARMACEUTICALS INC.-2018-07171

PATIENT
  Age: 21 Year
  Sex: Female

DRUGS (1)
  1. METFORMIN [Suspect]
     Active Substance: METFORMIN HYDROCHLORIDE
     Indication: INSULIN RESISTANCE
     Dosage: 850 MG, BID
     Route: 065

REACTIONS (2)
  - Paradoxical drug reaction [Unknown]
  - Glucose tolerance impaired [Unknown]
